FAERS Safety Report 9669478 (Version 1)
Quarter: 2013Q4

REPORT INFORMATION
  Report Type: Spontaneous
  Country: SE (occurrence: SE)
  Receive Date: 20131105
  Receipt Date: 20131105
  Transmission Date: 20140711
  Serious: Yes (Hospitalization, Other)
  Sender: FDA-Public Use
  Company Number: SE-PFIZER INC-2013311052

PATIENT
  Age: 87 Year
  Sex: Female

DRUGS (8)
  1. TOVIAZ [Suspect]
     Dosage: 4 MG, DAILY
     Route: 048
     Dates: end: 20130827
  2. FLUNITRAZEPAM [Suspect]
     Dosage: UNK
     Route: 048
     Dates: end: 20130827
  3. SIMVASTATIN [Concomitant]
  4. CITALOPRAM [Concomitant]
  5. VAGIFEM [Concomitant]
  6. CLOPIDOGREL [Concomitant]
  7. HIPREX [Concomitant]
  8. CANODERM [Concomitant]

REACTIONS (7)
  - Fatigue [Unknown]
  - Orthostatic intolerance [Unknown]
  - Dizziness [Unknown]
  - Muscular weakness [Unknown]
  - Dysarthria [Unknown]
  - Hyperhidrosis [Unknown]
  - Headache [Unknown]
